FAERS Safety Report 6731039-9 (Version None)
Quarter: 2010Q2

REPORT INFORMATION
  Report Type: 
  Country: None (occurrence: None)
  Receive Date: 20100518
  Receipt Date: 20100507
  Transmission Date: 20101027
  Serious: No
  Sender: FDA-Public Use
  Company Number: US-B.I. PHARMACEUTICALS,INC./RIDGEFIELD-2010-BP-05271BP

PATIENT
  Sex: Male

DRUGS (4)
  1. SPIRIVA [Suspect]
     Indication: CHRONIC OBSTRUCTIVE PULMONARY DISEASE
     Dosage: 18 MCG
     Route: 055
     Dates: start: 20100201
  2. ADVAIR DISKUS 100/50 [Concomitant]
     Indication: CHRONIC OBSTRUCTIVE PULMONARY DISEASE
  3. VICODIN [Concomitant]
     Indication: NERVE COMPRESSION
  4. VITAMINS [Concomitant]
     Indication: PROPHYLAXIS

REACTIONS (3)
  - BLOOD URINE PRESENT [None]
  - URINARY BLADDER HAEMORRHAGE [None]
  - URINARY RETENTION [None]
